FAERS Safety Report 9690332 (Version 1)
Quarter: 2013Q4

REPORT INFORMATION
  Report Type: Spontaneous
  Country: US (occurrence: US)
  Receive Date: 20131115
  Receipt Date: 20131115
  Transmission Date: 20140711
  Serious: No
  Sender: FDA-Public Use
  Company Number: US-BAYER-2013-139412

PATIENT
  Age: 55 Year
  Sex: Male
  Weight: 68.93 kg

DRUGS (2)
  1. ALEVE CAPLET [Suspect]
     Dosage: 1 DF, BID
     Route: 048
     Dates: start: 20131011
  2. MULTIVITAMIN [Concomitant]

REACTIONS (2)
  - Incorrect drug administration duration [None]
  - Skin discolouration [Not Recovered/Not Resolved]
